FAERS Safety Report 24967553 (Version 1)
Quarter: 2025Q1

REPORT INFORMATION
  Report Type: Spontaneous
  Country: CN (occurrence: CN)
  Receive Date: 20250214
  Receipt Date: 20250214
  Transmission Date: 20250409
  Serious: Yes (Hospitalization, Other)
  Sender: Haleon PLC
  Company Number: CN-HALEON-2227597

PATIENT
  Age: 75 Year
  Sex: Male
  Weight: 65 kg

DRUGS (3)
  1. IBUPROFEN [Suspect]
     Active Substance: IBUPROFEN
     Indication: Analgesic therapy
     Route: 048
     Dates: start: 20241229, end: 20250108
  2. CELECOXIB [Suspect]
     Active Substance: CELECOXIB
     Indication: Analgesic therapy
     Route: 048
     Dates: start: 20241217, end: 20250107
  3. DICLOFENAC SODIUM [Suspect]
     Active Substance: DICLOFENAC SODIUM
     Indication: Analgesic therapy
     Route: 054
     Dates: start: 20241221, end: 20241231

REACTIONS (5)
  - Melaena [Recovering/Resolving]
  - Duodenal ulcer [Recovering/Resolving]
  - Chronic gastritis [Recovering/Resolving]
  - Haemorrhagic erosive gastritis [Recovering/Resolving]
  - Upper gastrointestinal haemorrhage [Recovering/Resolving]
